FAERS Safety Report 23419347 (Version 1)
Quarter: 2024Q1

REPORT INFORMATION
  Report Type: Report from Study
  Country: CA (occurrence: CA)
  Receive Date: 20240118
  Receipt Date: 20240118
  Transmission Date: 20240409
  Serious: Yes (Other)
  Sender: FDA-Public Use
  Company Number: CA-CELLTRION INC.-2024CA000975

PATIENT

DRUGS (7)
  1. RITUXIMAB [Suspect]
     Active Substance: RITUXIMAB
     Indication: Anti-GAD antibody
     Dosage: 1000.0 MILLIGRAM
     Route: 042
  2. RITUXIMAB [Suspect]
     Active Substance: RITUXIMAB
     Dosage: 1000.0 MILLIGRAM
     Route: 042
  3. ACETAMINOPHEN [Concomitant]
     Active Substance: ACETAMINOPHEN
     Indication: Product used for unknown indication
     Dosage: 650.0 MILLIGRAM
     Route: 048
  4. COVID-19 VACCINE [Concomitant]
     Indication: Product used for unknown indication
     Route: 065
  5. DIPHENHYDRAMINE [Concomitant]
     Active Substance: DIPHENHYDRAMINE
     Indication: Product used for unknown indication
     Dosage: 50.0 MILLIGRAM
     Route: 048
  6. METHYLPREDNISOLONE [Concomitant]
     Active Substance: METHYLPREDNISOLONE
     Indication: Product used for unknown indication
     Dosage: 100.0 MILLIGRAM
     Route: 042
  7. PNEUMOCOCCAL VACCINE CONJ 20V (CRM197) [Concomitant]
     Indication: Product used for unknown indication
     Route: 065

REACTIONS (7)
  - Musculoskeletal stiffness [Recovered/Resolved]
  - Pharyngeal paraesthesia [Recovered/Resolved]
  - Acne [Recovered/Resolved]
  - Erythema [Recovered/Resolved]
  - Pneumonia [Recovered/Resolved]
  - Off label use [Recovered/Resolved]
  - Intentional product use issue [Unknown]
